FAERS Safety Report 24343722 (Version 1)
Quarter: 2024Q3

REPORT INFORMATION
  Report Type: Spontaneous
  Country: US (occurrence: US)
  Receive Date: 20240920
  Receipt Date: 20240920
  Transmission Date: 20241017
  Serious: Yes (Death, Hospitalization, Other)
  Sender: DR REDDYS
  Company Number: US-DRL-USA-SPO/USA/24/0013717

PATIENT
  Age: 54 Year

DRUGS (2)
  1. HEPARIN [Suspect]
     Active Substance: HEPARIN SODIUM
     Indication: Gastric cancer
  2. APIXABAN [Suspect]
     Active Substance: APIXABAN
     Indication: Heparin-induced thrombocytopenia

REACTIONS (2)
  - Drug ineffective for unapproved indication [Fatal]
  - Heparin-induced thrombocytopenia [Unknown]
